FAERS Safety Report 20447430 (Version 3)
Quarter: 2022Q2

REPORT INFORMATION
  Report Type: Spontaneous
  Country: PS (occurrence: PS)
  Receive Date: 20220209
  Receipt Date: 20220411
  Transmission Date: 20220721
  Serious: Yes (Hospitalization)
  Sender: FDA-Public Use
  Company Number: PS-NOVARTISPH-NVSC2022PS021448

PATIENT
  Sex: Female

DRUGS (8)
  1. DOCETAXEL [Suspect]
     Active Substance: DOCETAXEL
     Indication: Chemotherapy
     Dosage: 20 MG/2 ML
     Route: 065
     Dates: start: 20190124
  2. DOCETAXEL [Suspect]
     Active Substance: DOCETAXEL
     Indication: Breast cancer
     Dosage: 80 MG/8 ML
     Route: 065
     Dates: start: 20210208
  3. DOCETAXEL [Suspect]
     Active Substance: DOCETAXEL
     Dosage: 130 MG (80 MG/8 ML)
     Route: 042
  4. POLYSORBATE 80 [Suspect]
     Active Substance: POLYSORBATE 80
     Indication: Product used for unknown indication
     Dosage: 20 MG/1 ML
     Route: 065
  5. POLYSORBATE 80 [Suspect]
     Active Substance: POLYSORBATE 80
     Dosage: 10 MG/ 1ML
     Route: 065
  6. SALINE [Concomitant]
     Active Substance: SODIUM CHLORIDE
     Indication: Product used for unknown indication
     Dosage: 250-1000 ML (CONC:0.3-0.74 MG/ML)
     Route: 042
  7. DEXAMETHASONE [Concomitant]
     Active Substance: DEXAMETHASONE
     Indication: Product used for unknown indication
     Dosage: 8 MG, BID (FOR ONE WEEK)
     Route: 065
  8. CEFTRIAXONE [Concomitant]
     Active Substance: CEFTRIAXONE
     Indication: Product used for unknown indication
     Dosage: 1 G, BID (FOR ONE WEEK)
     Route: 065

REACTIONS (12)
  - Chemical burn [Recovered/Resolved]
  - Burning sensation [Unknown]
  - Skin discolouration [Unknown]
  - Rash vesicular [Unknown]
  - Mucosal disorder [Unknown]
  - Skin plaque [Unknown]
  - Oedema [Unknown]
  - Arthralgia [Unknown]
  - Erythema [Unknown]
  - Malaise [Unknown]
  - Skin exfoliation [Unknown]
  - Rash [Recovered/Resolved]
